FAERS Safety Report 12796316 (Version 1)
Quarter: 2016Q3

REPORT INFORMATION
  Report Type: Report from Study
  Country: US (occurrence: US)
  Receive Date: 20160929
  Receipt Date: 20160929
  Transmission Date: 20161109
  Serious: No
  Sender: FDA-Public Use
  Company Number: US-INCYTE CORPORATION-2015IN006507

PATIENT
  Age: 80 Year
  Sex: Female
  Weight: 63.72 kg

DRUGS (20)
  1. JAKAFI [Suspect]
     Active Substance: RUXOLITINIB
     Dosage: 5 MG, BID
     Route: 048
     Dates: start: 20140501
  2. HYDROXYZINE [Concomitant]
     Active Substance: HYDROXYZINE\HYDROXYZINE HYDROCHLORIDE
     Indication: PRURITUS
     Dosage: 10 MG, QD
     Dates: start: 2012, end: 20150624
  3. HYDREA [Concomitant]
     Active Substance: HYDROXYUREA
     Dosage: 500 MG, QD
     Dates: start: 20160402
  4. LISINOPRIL. [Concomitant]
     Active Substance: LISINOPRIL
     Indication: PRODUCT USED FOR UNKNOWN INDICATION
  5. AMLACTIN [Concomitant]
     Active Substance: AMMONIUM LACTATE
     Indication: PRODUCT USED FOR UNKNOWN INDICATION
  6. GLUCOSAMINE + CHONDROITIN          /01430901/ [Concomitant]
     Indication: PRODUCT USED FOR UNKNOWN INDICATION
  7. JAKAFI [Suspect]
     Active Substance: RUXOLITINIB
     Indication: POLYCYTHAEMIA VERA
     Dosage: 10 MG, BID
     Route: 048
     Dates: start: 20140509, end: 20151111
  8. JAKAFI [Suspect]
     Active Substance: RUXOLITINIB
     Indication: MYELOFIBROSIS
     Dosage: 5 MG, BID
     Route: 048
     Dates: start: 20151112, end: 20160217
  9. NAPROXEN. [Concomitant]
     Active Substance: NAPROXEN
     Indication: PRODUCT USED FOR UNKNOWN INDICATION
  10. DILTIAZEM. [Concomitant]
     Active Substance: DILTIAZEM
     Indication: HYPERTENSION
     Dosage: 180 MG, QD
     Dates: start: 2014, end: 201602
  11. HYDREA [Concomitant]
     Active Substance: HYDROXYUREA
     Indication: POLYCYTHAEMIA VERA
     Dosage: 500 MG, QD
     Dates: start: 20150722, end: 20150902
  12. MINOCYCLINE [Concomitant]
     Active Substance: MINOCYCLINE\MINOCYCLINE HYDROCHLORIDE
     Indication: POLYCYTHAEMIA VERA
     Dosage: 50 MG, QD
     Dates: start: 20140203, end: 20150624
  13. OSCAL                              /00514701/ [Concomitant]
     Indication: PRODUCT USED FOR UNKNOWN INDICATION
  14. ASPIRIN. [Concomitant]
     Active Substance: ASPIRIN
     Indication: POLYCYTHAEMIA VERA
     Dosage: 81 MG, QD
     Dates: start: 20080721
  15. HYDREA [Concomitant]
     Active Substance: HYDROXYUREA
     Dosage: 1000 MG, 3 TIMES PER WEEK
     Dates: start: 20160218, end: 20160401
  16. HYDREA [Concomitant]
     Active Substance: HYDROXYUREA
     Dosage: 500 MG 3 TIMES PER WEEK
     Dates: start: 20151002, end: 20160210
  17. HYDREA [Concomitant]
     Active Substance: HYDROXYUREA
     Dosage: 500 MG, QD
     Dates: start: 20160211, end: 20160217
  18. HYDREA [Concomitant]
     Active Substance: HYDROXYUREA
     Dosage: 500 MG, 4 TIMES PER WEEK
     Dates: start: 20160218, end: 20160401
  19. MIRALAX [Concomitant]
     Active Substance: POLYETHYLENE GLYCOL 3350
     Indication: PRODUCT USED FOR UNKNOWN INDICATION
  20. ISOSORBIDE MONONITRATE. [Concomitant]
     Active Substance: ISOSORBIDE MONONITRATE
     Dosage: 30 MG, QD
     Dates: start: 20150130

REACTIONS (10)
  - Skin cancer [Recovered/Resolved]
  - Balance disorder [Unknown]
  - Listless [Unknown]
  - Sinus node dysfunction [Recovering/Resolving]
  - Anaemia [Unknown]
  - Palpitations [Recovered/Resolved]
  - Heart rate irregular [Unknown]
  - Fatigue [Recovered/Resolved]
  - Myelofibrosis [Not Recovered/Not Resolved]
  - Thrombocytopenia [Recovered/Resolved]

NARRATIVE: CASE EVENT DATE: 201410
